FAERS Safety Report 4790200-3 (Version None)
Quarter: 2005Q4

REPORT INFORMATION
  Report Type: 
  Country: None (occurrence: None)
  Receive Date: 20051005
  Receipt Date: 20051005
  Transmission Date: 20060501
  Serious: Yes (Other)
  Sender: FDA-Public Use
  Company Number: None

PATIENT
  Age: 45 Year
  Sex: Female
  Weight: 54.4316 kg

DRUGS (1)
  1. DURAGESIC-75 [Suspect]
     Indication: BACK PAIN
     Dosage: ONE PATCH EVERY OTHER THREE DAYS
     Dates: start: 20031201, end: 20040425

REACTIONS (5)
  - HALLUCINATION [None]
  - PAIN [None]
  - PAIN IN EXTREMITY [None]
  - PRESCRIBED OVERDOSE [None]
  - SOMNOLENCE [None]
